FAERS Safety Report 7331354-4 (Version None)
Quarter: 2011Q1

REPORT INFORMATION
  Report Type: 
  Country: None (occurrence: None)
  Receive Date: 20110224
  Receipt Date: 20110215
  Transmission Date: 20110831
  Serious: Yes (Other)
  Sender: FDA-Public Use
  Company Number: 2011000739

PATIENT
  Age: 69 Year
  Sex: Female

DRUGS (8)
  1. IRON (IRON) [Concomitant]
  2. COMBIVENT [Concomitant]
  3. TARCEVA [Suspect]
     Indication: LUNG NEOPLASM MALIGNANT
     Dosage: (150 MG,QD),ORAL
     Route: 048
     Dates: start: 20110205
  4. XANAX [Concomitant]
  5. AMBIEN [Concomitant]
  6. AMLODIPINE [Concomitant]
  7. ADVAIR DISKU (SERETIDE MITE) [Concomitant]
  8. SPIRIVA [Concomitant]

REACTIONS (5)
  - FATIGUE [None]
  - ANAEMIA [None]
  - HAEMOPTYSIS [None]
  - NEUROPATHY PERIPHERAL [None]
  - FEELING ABNORMAL [None]
